FAERS Safety Report 8228000-4 (Version None)
Quarter: 2012Q1

REPORT INFORMATION
  Report Type: 
  Country: None (occurrence: None)
  Receive Date: 20120322
  Receipt Date: 20120127
  Transmission Date: 20120608
  Serious: Yes (Other)
  Sender: FDA-Public Use
  Company Number: US-BRISTOL-MYERS SQUIBB COMPANY-16371148

PATIENT
  Age: 68 Year
  Sex: Male
  Weight: 46 kg

DRUGS (1)
  1. ERBITUX [Suspect]
     Indication: LYMPHOMA

REACTIONS (2)
  - NEOPLASM MALIGNANT [None]
  - TOOTH DISORDER [None]
